FAERS Safety Report 6687499-5 (Version None)
Quarter: 2010Q2

REPORT INFORMATION
  Report Type: 
  Country: None (occurrence: None)
  Receive Date: 20100419
  Receipt Date: 20090616
  Transmission Date: 20101027
  Serious: No
  Sender: FDA-Public Use
  Company Number: US-ABBOTT-09P-163-0578647-00

PATIENT
  Sex: Male
  Weight: 40.86 kg

DRUGS (4)
  1. LUPRON DEPOT-PED [Suspect]
     Indication: PRECOCIOUS PUBERTY
     Dosage: CHILD DOSE
     Route: 050
     Dates: start: 20080201
  2. LUPRON DEPOT-PED [Suspect]
     Dosage: ADULT DOSE
     Dates: start: 20090605
  3. ARIMIDEX [Concomitant]
     Indication: DRUG USE FOR UNKNOWN INDICATION
     Dosage: 1
  4. SPIRONOLACTONE [Concomitant]
     Indication: DRUG USE FOR UNKNOWN INDICATION
     Dosage: 237.5 MG /DAY   2-200 MG   1 1/2 25 MG TAB

REACTIONS (1)
  - OVERDOSE [None]
